FAERS Safety Report 8018693-9 (Version None)
Quarter: 2012Q1

REPORT INFORMATION
  Report Type: 
  Country: None (occurrence: None)
  Receive Date: 20120103
  Receipt Date: 20120103
  Transmission Date: 20120608
  Serious: Yes (Other)
  Sender: FDA-Public Use
  Company Number: None

PATIENT
  Age: 43 Year
  Sex: Female
  Weight: 77.11 kg

DRUGS (1)
  1. LEVOFLOXACIN [Suspect]
     Indication: EAR INFECTION
     Dosage: 1
     Route: 048
     Dates: start: 20111111, end: 20111111

REACTIONS (9)
  - ALTERED STATE OF CONSCIOUSNESS [None]
  - VISION BLURRED [None]
  - JOINT CREPITATION [None]
  - INSOMNIA [None]
  - HEART RATE INCREASED [None]
  - PSYCHOTIC DISORDER [None]
  - DYSPHEMIA [None]
  - TREMOR [None]
  - SWELLING FACE [None]
